FAERS Safety Report 8335075-0 (Version None)
Quarter: 2012Q2

REPORT INFORMATION
  Report Type: 
  Country: None (occurrence: None)
  Receive Date: 20120503
  Receipt Date: 20100422
  Transmission Date: 20120825
  Serious: No
  Sender: FDA-Public Use
  Company Number: US-TEVA-2010002348

PATIENT
  Sex: Male

DRUGS (3)
  1. NUVIGIL [Suspect]
     Indication: NARCOLEPSY
     Route: 048
  2. PROVIGIL [Suspect]
     Indication: NARCOLEPSY
     Route: 048
  3. PROVIGIL [Suspect]
     Route: 048
     Dates: start: 20091201, end: 20091201

REACTIONS (1)
  - DRUG INEFFECTIVE [None]
